FAERS Safety Report 6381533-8 (Version None)
Quarter: 2009Q3

REPORT INFORMATION
  Report Type: 
  Country: None (occurrence: None)
  Receive Date: 20090925
  Receipt Date: 20090915
  Transmission Date: 20100115
  Serious: Yes (Hospitalization, Other)
  Sender: FDA-Public Use
  Company Number: DE-1170675

PATIENT
  Age: 63 Year
  Sex: Male

DRUGS (1)
  1. FLUORESCITE [Suspect]
     Dosage: 2.5 ML INTRAVENOUS BOLUS
     Route: 040
     Dates: start: 20090729, end: 20090729

REACTIONS (3)
  - CEREBELLAR INFARCTION [None]
  - CIRCULATORY COLLAPSE [None]
  - HYPERTENSIVE CRISIS [None]
